FAERS Safety Report 18111177 (Version 3)
Quarter: 2020Q3

REPORT INFORMATION
  Report Type: Spontaneous
  Country: ES (occurrence: ES)
  Receive Date: 20200804
  Receipt Date: 20200809
  Transmission Date: 20201103
  Serious: Yes (Life-Threatening, Hospitalization, Other)
  Sender: FDA-Public Use
  Company Number: NVSC2020ES215521

PATIENT
  Age: 37 Year
  Sex: Female

DRUGS (6)
  1. LOPINAVIR + RITONAVIR [Concomitant]
     Active Substance: LOPINAVIR\RITONAVIR
     Indication: PNEUMONIA
     Dosage: 1 DF(200/50 MG), Q12H
     Route: 065
  2. HYDROXYCHLOROQUINE [Suspect]
     Active Substance: HYDROXYCHLOROQUINE
     Indication: SUSPECTED COVID-19
     Dosage: 200 MG
     Route: 065
  3. HYDROXYCHLOROQUINE [Suspect]
     Active Substance: HYDROXYCHLOROQUINE
     Indication: PNEUMONIA
  4. LOPINAVIR + RITONAVIR [Concomitant]
     Active Substance: LOPINAVIR\RITONAVIR
     Indication: SUSPECTED COVID-19
     Dosage: UNK, 200/50 MG
     Route: 065
  5. AZITHROMYCIN ANHYDROUS. [Concomitant]
     Active Substance: AZITHROMYCIN ANHYDROUS
     Indication: SUSPECTED COVID-19
     Dosage: 250 MG, QD
     Route: 065
  6. AZITHROMYCIN ANHYDROUS. [Concomitant]
     Active Substance: AZITHROMYCIN ANHYDROUS
     Indication: PNEUMONIA

REACTIONS (10)
  - Angioedema [Unknown]
  - Drug reaction with eosinophilia and systemic symptoms [Unknown]
  - Purpura [Unknown]
  - Enanthema [Unknown]
  - Transaminases increased [Unknown]
  - Leukocytosis [Unknown]
  - Pyrexia [Unknown]
  - Off label use [Unknown]
  - Lymphadenopathy [Unknown]
  - Rash maculo-papular [Unknown]
